FAERS Safety Report 9988846 (Version 1)
Quarter: 2014Q1

REPORT INFORMATION
  Report Type: Spontaneous
  Country: DE (occurrence: DE)
  Receive Date: 20140310
  Receipt Date: 20140310
  Transmission Date: 20141002
  Serious: Yes (Congenital Anomaly)
  Sender: FDA-Public Use
  Company Number: DE-MYLANLABS-2014S1004252

PATIENT
  Age: 1 Day
  Sex: Male
  Weight: 2.78 kg

DRUGS (8)
  1. CITALOPRAM [Suspect]
     Indication: ANXIETY DISORDER
     Dosage: 10 [MG/D ]
     Route: 064
     Dates: start: 20120701, end: 20121221
  2. TREVILOR [Suspect]
     Indication: ANXIETY DISORDER
     Dosage: 75 [MG/D ]
     Route: 064
     Dates: start: 20120330, end: 20120501
  3. METOBETA [Concomitant]
     Indication: HYPERTENSION
     Dosage: 100 [MG/D ]
     Route: 064
     Dates: start: 20120330, end: 20121221
  4. L-THYROXIN [Concomitant]
     Indication: HYPOTHYROIDISM
     Dosage: 125 [?G/D ]
     Route: 064
     Dates: start: 20120330, end: 20121221
  5. FRAGMIN [Concomitant]
     Indication: COAGULOPATHY
     Dosage: 7500 [IE/D ]
     Route: 064
     Dates: start: 20120503, end: 20121221
  6. ASS 100 [Concomitant]
     Indication: COAGULOPATHY
     Dosage: 100 [MG/D ]
     Route: 064
     Dates: start: 20120510, end: 20121115
  7. FOLIO [Concomitant]
     Indication: PROPHYLAXIS OF NEURAL TUBE DEFECT
     Dosage: 0.4 [MG/D ]
     Route: 064
     Dates: start: 20120502, end: 20121217
  8. INSUMAN BASAL [Concomitant]
     Indication: GESTATIONAL DIABETES
     Route: 064
     Dates: start: 20121009, end: 20121221

REACTIONS (3)
  - Haemangioma [Unknown]
  - Hydronephrosis [Not Recovered/Not Resolved]
  - Exposure during pregnancy [Recovered/Resolved]
